FAERS Safety Report 18327654 (Version 1)
Quarter: 2020Q3

REPORT INFORMATION
  Report Type: Spontaneous
  Country: JP (occurrence: JP)
  Receive Date: 20200929
  Receipt Date: 20200929
  Transmission Date: 20201103
  Serious: Yes (Death, Other)
  Sender: FDA-Public Use
  Company Number: JP-JNJFOC-20200941441

PATIENT
  Age: 89 Year
  Sex: Male
  Weight: 59 kg

DRUGS (12)
  1. LASIX [Concomitant]
     Active Substance: FUROSEMIDE
  2. XARELTO [Suspect]
     Active Substance: RIVAROXABAN
     Indication: THROMBOSIS PROPHYLAXIS
     Dosage: 10 MG
     Route: 048
     Dates: start: 20150610, end: 20160317
  3. XARELTO [Suspect]
     Active Substance: RIVAROXABAN
     Indication: ATRIAL FIBRILLATION
  4. ZOSYN [Concomitant]
     Active Substance: PIPERACILLIN SODIUM\TAZOBACTAM SODIUM
  5. NIFEDIPINE CR SANWA [Concomitant]
  6. UNASYN S [Concomitant]
     Active Substance: AMPICILLIN SODIUM\SULBACTAM SODIUM
  7. SOL?MELCORT [Concomitant]
     Active Substance: METHYLPREDNISOLONE SODIUM SUCCINATE
  8. MEVALOTIN [Concomitant]
     Active Substance: PRAVASTATIN SODIUM
  9. NEXIUM I.V. [Concomitant]
     Active Substance: ESOMEPRAZOLE SODIUM
  10. BAYASPIRIN [Suspect]
     Active Substance: ASPIRIN
     Indication: ANGINA PECTORIS
     Route: 048
     Dates: start: 2009, end: 20160318
  11. ASPARA POTASSIUM [Concomitant]
     Active Substance: POTASSIUM ASPARTATE
  12. NU?LOTAN [Concomitant]
     Active Substance: LOSARTAN POTASSIUM

REACTIONS (10)
  - Diffuse alveolar damage [Unknown]
  - Respiratory failure [Fatal]
  - Dyspnoea [Fatal]
  - Haemoptysis [Fatal]
  - Pneumonia [Unknown]
  - Multiple organ dysfunction syndrome [Fatal]
  - Organising pneumonia [Unknown]
  - Pulmonary alveolar haemorrhage [Fatal]
  - Cough [Fatal]
  - Productive cough [Fatal]

NARRATIVE: CASE EVENT DATE: 20160318
